FAERS Safety Report 21705718 (Version 1)
Quarter: 2022Q4

REPORT INFORMATION
  Report Type: Spontaneous
  Country: JP (occurrence: JP)
  Receive Date: 20221209
  Receipt Date: 20221209
  Transmission Date: 20230113
  Serious: Yes (Other)
  Sender: FDA-Public Use
  Company Number: JP-PFM-2018-15057

PATIENT

DRUGS (3)
  1. PROPRANOLOL HYDROCHLORIDE [Suspect]
     Active Substance: PROPRANOLOL HYDROCHLORIDE
     Indication: Infantile haemangioma
     Dosage: 1 MG/KG PER DAY (1.4 ML/DAY)
     Route: 048
     Dates: start: 20181204, end: 20181204
  2. PROPRANOLOL HYDROCHLORIDE [Suspect]
     Active Substance: PROPRANOLOL HYDROCHLORIDE
     Dosage: 2 MG/KG DAILY( 2.8 ML/PER DAY)
     Route: 048
     Dates: start: 20181205, end: 20181206
  3. PROPRANOLOL HYDROCHLORIDE [Suspect]
     Active Substance: PROPRANOLOL HYDROCHLORIDE
     Dosage: 1 MG/KG/ DAY
     Route: 048
     Dates: start: 20181207, end: 20181207

REACTIONS (3)
  - Agranulocytosis [Recovering/Resolving]
  - Drug titration error [Unknown]
  - Off label use [Unknown]

NARRATIVE: CASE EVENT DATE: 20181207
